FAERS Safety Report 13337330 (Version 1)
Quarter: 2017Q1

REPORT INFORMATION
  Report Type: Spontaneous
  Country: US (occurrence: US)
  Receive Date: 20170314
  Receipt Date: 20170314
  Transmission Date: 20170428
  Serious: No
  Sender: FDA-Public Use
  Company Number: None

PATIENT
  Age: 62 Year
  Sex: Female

DRUGS (6)
  1. IBRANCE [Suspect]
     Active Substance: PALBOCICLIB
     Indication: BREAST CANCER FEMALE
  2. IBRANCE [Suspect]
     Active Substance: PALBOCICLIB
     Indication: SJOGREN^S SYNDROME
  3. IBRANCE [Suspect]
     Active Substance: PALBOCICLIB
     Indication: OSTEOARTHRITIS
  4. IBRANCE [Suspect]
     Active Substance: PALBOCICLIB
     Indication: FIBROMYALGIA
  5. IBRANCE [Suspect]
     Active Substance: PALBOCICLIB
     Indication: BLOOD TEST ABNORMAL
  6. IBRANCE [Suspect]
     Active Substance: PALBOCICLIB
     Indication: RHEUMATOID ARTHRITIS

REACTIONS (2)
  - Fatigue [None]
  - Alopecia [None]

NARRATIVE: CASE EVENT DATE: 20170314
